FAERS Safety Report 25842593 (Version 3)
Quarter: 2025Q4

REPORT INFORMATION
  Report Type: Spontaneous
  Country: US (occurrence: US)
  Receive Date: 20250924
  Receipt Date: 20251029
  Transmission Date: 20260118
  Serious: Yes (Hospitalization)
  Sender: SYNDAX
  Company Number: US-SYNDAX PHARMACEUTICALS, INC.-2025US000727

PATIENT
  Sex: Male
  Weight: 36.494 kg

DRUGS (2)
  1. REVUFORJ [Suspect]
     Active Substance: REVUMENIB CITRATE
     Indication: Product used for unknown indication
     Dosage: 110 MILLIGRAM, BID
     Route: 048
  2. VENCLEXTA [Concomitant]
     Active Substance: VENETOCLAX
     Indication: Product used for unknown indication
     Route: 065

REACTIONS (8)
  - Serum ferritin increased [Unknown]
  - Blood magnesium increased [Unknown]
  - Nausea [Unknown]
  - Vomiting [Unknown]
  - Blood potassium abnormal [Unknown]
  - Biopsy bone marrow [Unknown]
  - Product size issue [Unknown]
  - Off label use [Unknown]
